FAERS Safety Report 12669393 (Version 1)
Quarter: 2016Q3

REPORT INFORMATION
  Report Type: Spontaneous
  Country: AU (occurrence: AU)
  Receive Date: 20160819
  Receipt Date: 20160819
  Transmission Date: 20161109
  Serious: Yes (Other)
  Sender: FDA-Public Use
  Company Number: AU-NOVOPROD-505559

PATIENT
  Age: 81 Year
  Sex: Female

DRUGS (1)
  1. NOVOMIX 30 [Suspect]
     Active Substance: INSULIN ASPART
     Indication: DIABETES MELLITUS
     Dosage: 28 UNITS IN MORNING AND 20 UNITS IN EVENING
     Route: 058
     Dates: start: 2015

REACTIONS (1)
  - Abdominal abscess [Unknown]
